FAERS Safety Report 17744315 (Version 1)
Quarter: 2020Q2

REPORT INFORMATION
  Report Type: Spontaneous
  Country: FR (occurrence: FR)
  Receive Date: 20200504
  Receipt Date: 20200504
  Transmission Date: 20200714
  Serious: Yes (Hospitalization, Other)
  Sender: FDA-Public Use
  Company Number: FR-AMGEN-FRASP2020070610

PATIENT
  Age: 72 Year
  Sex: Female
  Weight: 99 kg

DRUGS (6)
  1. VECTIBIX [Suspect]
     Active Substance: PANITUMUMAB
     Indication: ADENOCARCINOMA OF COLON
     Dosage: 612 MILLIGRAM, CYCLICAL
     Route: 041
     Dates: start: 20200129
  2. ZOPHREN [ONDANSETRON HYDROCHLORIDE] [Suspect]
     Active Substance: ONDANSETRON
     Indication: NAUSEA
     Dosage: 8 MILLIGRAM, QD
     Route: 048
     Dates: start: 20200312, end: 20200314
  3. LEVOFOLINATE [CALCIUM LEVOFOLINATE] [Suspect]
     Active Substance: LEVOLEUCOVORIN CALCIUM
     Indication: ADENOCARCINOMA OF COLON
     Dosage: 400 MILLIGRAM, CYCLICAL
     Route: 041
     Dates: start: 20200129, end: 20200312
  4. OXALIPLATINE [Suspect]
     Active Substance: OXALIPLATIN
     Indication: ADENOCARCINOMA OF COLON
     Dosage: 170 MILLIGRAM, CYCLICAL
     Route: 041
     Dates: start: 20200129, end: 20200312
  5. FLUOROURACILE [Suspect]
     Active Substance: FLUOROURACIL
     Indication: ADENOCARCINOMA OF COLON
     Dosage: 4800 MILLIGRAM, CYCLICAL
     Route: 041
     Dates: start: 20200129, end: 20200312
  6. SOLU-MEDROL [Suspect]
     Active Substance: METHYLPREDNISOLONE SODIUM SUCCINATE
     Indication: CHEMOTHERAPY
     Dosage: 40 MILLIGRAM (TOTAL)
     Route: 041
     Dates: start: 20200312, end: 20200312

REACTIONS (3)
  - Diarrhoea [Recovered/Resolved]
  - Acute kidney injury [Recovered/Resolved]
  - Dermatitis bullous [Recovering/Resolving]

NARRATIVE: CASE EVENT DATE: 202003
